FAERS Safety Report 6236698-5 (Version None)
Quarter: 2009Q2

REPORT INFORMATION
  Report Type: 
  Country: None (occurrence: None)
  Receive Date: 20090619
  Receipt Date: 20090316
  Transmission Date: 20091009
  Serious: No
  Sender: FDA-Public Use
  Company Number: US-ASTRAZENECA-2009UW06752

PATIENT
  Age: 71 Year
  Sex: Female
  Weight: 96.6 kg

DRUGS (14)
  1. ATACAND [Suspect]
     Route: 048
  2. NEXIUM [Suspect]
     Route: 048
  3. CRESTOR [Suspect]
     Route: 048
  4. BUSPIRONE HCL [Concomitant]
  5. CARDURA [Concomitant]
  6. VESICARE [Concomitant]
  7. EFFEXOR [Concomitant]
  8. GLUCOPHAGE [Concomitant]
  9. LASIX [Concomitant]
  10. NORVASC [Concomitant]
  11. TOPROL-XL [Concomitant]
  12. EQUIP [Concomitant]
  13. SINGULAIR [Concomitant]
  14. CATAPRESS PATCH [Concomitant]

REACTIONS (2)
  - ABDOMINAL PAIN UPPER [None]
  - DEFAECATION URGENCY [None]
